FAERS Safety Report 8650206 (Version 2)
Quarter: 2012Q4

REPORT INFORMATION
  Report Type: 
  Country: US (occurrence: US)
  Receive Date: 20120705
  Receipt Date: 20121029
  Transmission Date: 20130627
  Serious: Yes (Hospitalization, Disabling, Other)
  Sender: FDA-Public Use
  Company Number: US-PFIZER INC-2012158176

PATIENT
  Age: 37 Year
  Sex: Female

DRUGS (3)
  1. CHANTIX [Suspect]
     Indication: SMOKING CESSATION THERAPY
     Dosage: UNK
     Dates: start: 20090928, end: 20091023
  2. THIOLA [Concomitant]
     Indication: KIDNEY DISORDER
     Dosage: UNK
     Dates: start: 2008
  3. HYDROCODONE [Concomitant]
     Indication: KIDNEY PAIN
     Dosage: UNK
     Dates: start: 2008

REACTIONS (5)
  - Suicidal ideation [Unknown]
  - Depression [Not Recovered/Not Resolved]
  - Agitation [Unknown]
  - Anxiety [Not Recovered/Not Resolved]
  - Panic attack [Not Recovered/Not Resolved]
